FAERS Safety Report 10052829 (Version 1)
Quarter: 2014Q1

REPORT INFORMATION
  Report Type: Spontaneous
  Country: GB (occurrence: None)
  Receive Date: 20140331
  Receipt Date: 20140331
  Transmission Date: 20141002
  Serious: Yes (Hospitalization)
  Sender: FDA-Public Use
  Company Number: AG-2013-016257

PATIENT
  Age: 80 Year
  Sex: Male
  Weight: 73.2 kg

DRUGS (10)
  1. CHLORAMBUCIL [Suspect]
     Indication: CHRONIC LYMPHOCYTIC LEUKAEMIA
     Route: 048
     Dates: start: 20131121, end: 20131127
  2. OFATUMUMAB [Suspect]
     Indication: CHRONIC LYMPHOCYTIC LEUKAEMIA
     Dosage: 1300MG, UNKNOWN, INTRAVENOUS (NOT OTHERWISE SPECIFIED)
     Route: 042
     Dates: start: 20131121, end: 20131128
  3. PARACETAMOL [Concomitant]
  4. CHLORPHENIRAMINE [Concomitant]
  5. PREDNISOLONE [Concomitant]
  6. ALLOPURINOL [Concomitant]
  7. METOCLOPRAMIDE [Concomitant]
  8. ACICLOVIR [Concomitant]
  9. GRANULOCYTE COLONY-STIMULATING FACTOR NOS [Concomitant]
  10. SIMVASTATIN [Concomitant]

REACTIONS (3)
  - Lower respiratory tract infection [None]
  - Bronchitis [None]
  - Haemoglobin decreased [None]
